FAERS Safety Report 10152095 (Version 2)
Quarter: 2014Q3

REPORT INFORMATION
  Report Type: Spontaneous
  Country: US (occurrence: US)
  Receive Date: 20140505
  Receipt Date: 20140730
  Transmission Date: 20150326
  Serious: No
  Sender: FDA-Public Use
  Company Number: US-BRISTOL-MYERS SQUIBB COMPANY-20576310

PATIENT
  Age: 62 Year
  Sex: Female

DRUGS (26)
  1. PANTOPRAZOLE SODIUM [Concomitant]
     Active Substance: PANTOPRAZOLE SODIUM
  2. AZELASTINE HCL [Concomitant]
     Active Substance: AZELASTINE HYDROCHLORIDE
     Indication: HYPERSENSITIVITY
  3. TRIMEBUTINE [Concomitant]
     Active Substance: TRIMEBUTINE
  4. COQ10 [Concomitant]
     Active Substance: UBIDECARENONE
  5. SPIRULINA [Concomitant]
     Active Substance: SPIRULINA
  6. LACTULOSE. [Concomitant]
     Active Substance: LACTULOSE
     Indication: CONSTIPATION
  7. MAXAIR [Concomitant]
     Active Substance: PIRBUTEROL ACETATE
  8. VITAMIN C [Concomitant]
     Active Substance: ASCORBIC ACID
  9. FARXIGA [Suspect]
     Active Substance: DAPAGLIFLOZIN PROPANEDIOL
     Indication: TYPE 2 DIABETES MELLITUS
     Route: 048
     Dates: start: 20140312, end: 20140324
  10. ONGLYZA [Concomitant]
     Active Substance: SAXAGLIPTIN HYDROCHLORIDE
  11. FLUOROURACIL. [Concomitant]
     Active Substance: FLUOROURACIL
  12. NIFEDIPINE ER [Concomitant]
     Active Substance: NIFEDIPINE
     Indication: RAYNAUD^S PHENOMENON
  13. IRBESARTAN. [Concomitant]
     Active Substance: IRBESARTAN
  14. FLEXERIL [Concomitant]
     Active Substance: CYCLOBENZAPRINE HYDROCHLORIDE
  15. NYSTATIN. [Concomitant]
     Active Substance: NYSTATIN
  16. OMEGA-3 ACIDS [Concomitant]
     Active Substance: OMEGA-3 FATTY ACIDS
  17. ZOLPIDEM TARTRATE. [Concomitant]
     Active Substance: ZOLPIDEM TARTRATE
  18. CALCIUM [Concomitant]
     Active Substance: CALCIUM
  19. VITAMIN D [Concomitant]
     Active Substance: CHOLECALCIFEROL
  20. VALIUM [Concomitant]
     Active Substance: DIAZEPAM
  21. POTASSIUM CHLORIDE. [Concomitant]
     Active Substance: POTASSIUM CHLORIDE
  22. CYANOCOBALAMIN. [Concomitant]
     Active Substance: CYANOCOBALAMIN
  23. LASIX [Concomitant]
     Active Substance: FUROSEMIDE
  24. CICLOPIROX. [Concomitant]
     Active Substance: CICLOPIROX
  25. RESVERATROL [Concomitant]
     Active Substance: RESVERATROL
  26. TRAZODONE HCL TABS [Concomitant]

REACTIONS (3)
  - Urticaria [Recovered/Resolved]
  - Blood glucose increased [Unknown]
  - Swollen tongue [Recovered/Resolved]

NARRATIVE: CASE EVENT DATE: 20140313
